FAERS Safety Report 4469654-8 (Version None)
Quarter: 2004Q4

REPORT INFORMATION
  Report Type: 
  Country: None (occurrence: None)
  Receive Date: 20041008
  Receipt Date: 20040929
  Transmission Date: 20050328
  Serious: Yes (Hospitalization)
  Sender: FDA-Public Use
  Company Number: 200413630FR

PATIENT
  Age: 52 Year
  Sex: Female

DRUGS (2)
  1. TAXOTERE [Suspect]
     Indication: LUNG NEOPLASM MALIGNANT
     Route: 042
     Dates: start: 20040907
  2. CISPLATIN [Concomitant]
     Dates: start: 20040907

REACTIONS (12)
  - ABNORMAL FAECES [None]
  - ASTHENIA [None]
  - GENERAL PHYSICAL HEALTH DETERIORATION [None]
  - GINGIVAL BLEEDING [None]
  - HAEMORRHAGIC DISORDER [None]
  - HEART RATE INCREASED [None]
  - HEART SOUNDS ABNORMAL [None]
  - HEPATIC FAILURE [None]
  - ORAL FUNGAL INFECTION [None]
  - PANCYTOPENIA [None]
  - PROTHROMBIN LEVEL DECREASED [None]
  - RECTAL HAEMORRHAGE [None]
